FAERS Safety Report 5812873-6 (Version None)
Quarter: 2008Q3

REPORT INFORMATION
  Report Type: 
  Country: None (occurrence: None)
  Receive Date: 20080717
  Receipt Date: 20071126
  Transmission Date: 20090109
  Serious: No
  Sender: FDA-Public Use
  Company Number: A0593800A

PATIENT
  Age: 43 Year
  Sex: Female

DRUGS (1)
  1. NICORETTE [Suspect]

REACTIONS (9)
  - DIARRHOEA [None]
  - ERYTHEMA [None]
  - FEELING ABNORMAL [None]
  - HEADACHE [None]
  - HYPERSENSITIVITY [None]
  - PRURITUS [None]
  - PRURITUS GENERALISED [None]
  - URTICARIA [None]
  - VOMITING [None]
